FAERS Safety Report 11297174 (Version 3)
Quarter: 2015Q4

REPORT INFORMATION
  Report Type: Spontaneous
  Country: US (occurrence: US)
  Receive Date: 20150722
  Receipt Date: 20151110
  Transmission Date: 20160304
  Serious: No
  Sender: FDA-Public Use
  Company Number: US-ELI_LILLY_AND_COMPANY-US201012005583

PATIENT
  Age: 76 Year
  Sex: Female
  Weight: 47.62 kg

DRUGS (9)
  1. FORTEO [Suspect]
     Active Substance: TERIPARATIDE
     Indication: OSTEOPOROSIS
     Dosage: 20 UG, QD
     Route: 065
     Dates: start: 20101207
  2. FORTEO [Suspect]
     Active Substance: TERIPARATIDE
     Dosage: 20 UG, QD
     Route: 065
  3. FORTEO [Suspect]
     Active Substance: TERIPARATIDE
     Dosage: 20 UG, QD
     Route: 065
  4. CALCIUM [Concomitant]
     Active Substance: CALCIUM
     Dosage: UNK
  5. CALCIUM [Concomitant]
     Active Substance: CALCIUM
     Dosage: 500 DF, QD
  6. FORTEO [Suspect]
     Active Substance: TERIPARATIDE
     Dosage: 20 UG, QD
     Route: 065
     Dates: end: 20110607
  7. FORTEO [Suspect]
     Active Substance: TERIPARATIDE
     Dosage: 20 UG, QD
     Route: 065
  8. FORTEO [Suspect]
     Active Substance: TERIPARATIDE
     Dosage: 20 UG, QD
     Route: 065
  9. EVISTA [Suspect]
     Active Substance: RALOXIFENE HYDROCHLORIDE
     Indication: OSTEOPOROSIS
     Dosage: 60 MG, QD
     Route: 065
     Dates: start: 201108

REACTIONS (25)
  - Malaise [Unknown]
  - Drug dose omission [Unknown]
  - Weight decreased [Not Recovered/Not Resolved]
  - Arthralgia [Recovering/Resolving]
  - Injection site bruising [Unknown]
  - Impaired healing [Unknown]
  - Frustration [Unknown]
  - Urinary tract infection [Unknown]
  - Fatigue [Unknown]
  - Dysuria [Unknown]
  - Weight increased [Unknown]
  - Limb discomfort [Unknown]
  - Eating disorder [Unknown]
  - Blood calcium decreased [Unknown]
  - Blood calcium increased [Unknown]
  - Injection site pain [Unknown]
  - Kidney infection [Recovering/Resolving]
  - Myalgia [Recovering/Resolving]
  - Muscular weakness [Unknown]
  - Decreased appetite [Not Recovered/Not Resolved]
  - Intervertebral disc disorder [Unknown]
  - Muscle spasms [Not Recovered/Not Resolved]
  - Nausea [Not Recovered/Not Resolved]
  - Pain in extremity [Not Recovered/Not Resolved]
  - Injection site bruising [Recovered/Resolved]

NARRATIVE: CASE EVENT DATE: 201012
